FAERS Safety Report 20206026 (Version 1)
Quarter: 2021Q4

REPORT INFORMATION
  Report Type: Spontaneous
  Country: NL (occurrence: NL)
  Receive Date: 20211220
  Receipt Date: 20211220
  Transmission Date: 20220303
  Serious: Yes (Other)
  Sender: FDA-Public Use
  Company Number: NL-TAKEDA-2021TUS078870

PATIENT
  Age: 30 Year
  Sex: Female

DRUGS (9)
  1. LIOTHYRONINE [Suspect]
     Active Substance: LIOTHYRONINE
     Indication: Hypothyroidism
     Dosage: 25 MICROGRAM, QD
     Route: 065
  2. LIOTHYRONINE [Suspect]
     Active Substance: LIOTHYRONINE
     Dosage: 30 MICROGRAM, QD
     Route: 065
  3. LEVOTHYROXINE [Concomitant]
     Active Substance: LEVOTHYROXINE
  4. KETOROLAC [Concomitant]
     Active Substance: KETOROLAC TROMETHAMINE
  5. MORPHINE [Concomitant]
     Active Substance: MORPHINE
  6. DIMENHYDRINATE [Concomitant]
     Active Substance: DIMENHYDRINATE
  7. HYDROMORPHONE [Concomitant]
     Active Substance: HYDROMORPHONE
     Route: 048
  8. PROPRANOLOL [Concomitant]
     Active Substance: PROPRANOLOL HYDROCHLORIDE
     Indication: Tachycardia
  9. PROPRANOLOL [Concomitant]
     Active Substance: PROPRANOLOL HYDROCHLORIDE
     Indication: Agitation

REACTIONS (4)
  - Hyperthyroidism [Unknown]
  - Overdose [Unknown]
  - Off label use [Unknown]
  - Product preparation error [Unknown]
